FAERS Safety Report 9184495 (Version 2)
Quarter: 2013Q2

REPORT INFORMATION
  Report Type: Report from Study
  Country: DE (occurrence: DE)
  Receive Date: 20130322
  Receipt Date: 20130429
  Transmission Date: 20140414
  Serious: Yes (Hospitalization)
  Sender: FDA-Public Use
  Company Number: DE-ROCHE-1198618

PATIENT
  Age: 79 Year
  Sex: Female
  Weight: 63.4 kg

DRUGS (24)
  1. RITUXIMAB [Suspect]
     Indication: B-CELL LYMPHOMA
     Dosage: LAST DOSE ON 21/FEB/2013
     Route: 042
     Dates: start: 20121219
  2. ALLOPURINOL [Suspect]
     Indication: PREMEDICATION
     Route: 065
     Dates: start: 20121220
  3. GRANISETRON [Suspect]
     Indication: PREMEDICATION
     Route: 065
     Dates: start: 20121219
  4. TORASEMIDE [Suspect]
     Indication: HYPERTONIA
     Route: 065
     Dates: start: 20121017
  5. DOXEPIN HYDROCHLORIDE [Suspect]
     Route: 065
  6. CIPROFLOXACIN [Suspect]
     Indication: NEUTROPENIA
     Route: 065
     Dates: start: 20130102, end: 20130112
  7. SPIRONOLACTON [Suspect]
     Route: 065
     Dates: start: 20130117
  8. PREDNISOLONE SODIUM SUCCINATE [Suspect]
     Indication: DYSPNOEA
     Route: 065
     Dates: start: 20121219, end: 20121219
  9. PREDNISOLONE SODIUM SUCCINATE [Suspect]
     Indication: FEELING HOT
  10. DIMETINDENE MALEATE [Suspect]
     Indication: DYSPNOEA
     Route: 065
     Dates: start: 20121219, end: 20121219
  11. DIMETINDENE MALEATE [Suspect]
     Indication: FEELING HOT
  12. SODIUM CHLORIDE [Suspect]
     Indication: DYSPNOEA
     Route: 065
     Dates: start: 20121219, end: 20121219
  13. SODIUM CHLORIDE [Suspect]
     Indication: FEELING HOT
  14. POTASSIUM BICARBONATE/POTASSIUM CITRATE [Suspect]
     Indication: HYPOKALAEMIA
     Route: 065
     Dates: start: 20130122
  15. MESNA [Suspect]
     Indication: PREMEDICATION
     Route: 065
     Dates: start: 20121219
  16. METOCLOPRAMIDE/METOCLOPRAMIDE HYDROCHLORIDE [Suspect]
     Indication: PREMEDICATION
     Route: 065
     Dates: start: 20121219
  17. DEXAMETHASON [Suspect]
     Indication: PREMEDICATION
     Route: 065
     Dates: start: 20121219
  18. FLUCONAZOLE [Suspect]
     Indication: PREMEDICATION
     Route: 065
     Dates: start: 20121220
  19. RANITIDIN [Suspect]
     Indication: PREMEDICATION
     Route: 065
     Dates: start: 20121219
  20. PARACETAMOL [Suspect]
     Indication: PREMEDICATION
     Route: 065
     Dates: start: 20121219
  21. PREDNISOLONE [Suspect]
     Indication: PROPHYLAXIS
     Route: 065
     Dates: start: 20130110
  22. CYCLOPHOSPHAMIDE [Suspect]
     Indication: B-CELL LYMPHOMA
     Route: 065
  23. VINCRISTINE [Suspect]
     Indication: B-CELL LYMPHOMA
     Route: 065
  24. PREDNISONE [Suspect]
     Indication: B-CELL LYMPHOMA
     Route: 065

REACTIONS (1)
  - Constipation [Recovered/Resolved]
